FAERS Safety Report 8539419-6 (Version None)
Quarter: 2012Q3

REPORT INFORMATION
  Report Type: 
  Country: None (occurrence: None)
  Receive Date: 20120726
  Receipt Date: 20120709
  Transmission Date: 20120928
  Serious: Yes (Other)
  Sender: FDA-Public Use
  Company Number: GB-PFIZER INC-2012160209

PATIENT
  Age: 57 Year
  Sex: Female

DRUGS (1)
  1. VARENICLINE TARTRATE [Suspect]

REACTIONS (6)
  - SKIN EXFOLIATION [None]
  - CHEST PAIN [None]
  - ASTHENIA [None]
  - RASH MACULAR [None]
  - GAIT DISTURBANCE [None]
  - DEPRESSED MOOD [None]
